FAERS Safety Report 16269752 (Version 1)
Quarter: 2019Q2

REPORT INFORMATION
  Report Type: Spontaneous
  Country: US (occurrence: US)
  Receive Date: 20190503
  Receipt Date: 20190503
  Transmission Date: 20190711
  Serious: No
  Sender: FDA-Public Use
  Company Number: US-PFIZER INC-2015144282

PATIENT
  Age: 60 Year
  Sex: Male
  Weight: 82 kg

DRUGS (10)
  1. KLONOPIN [Concomitant]
     Active Substance: CLONAZEPAM
     Dosage: 1 MG, 3X/DAY
     Route: 048
  2. PRAZOSIN. [Concomitant]
     Active Substance: PRAZOSIN
     Dosage: UNK
  3. TESTOSTERONE. [Concomitant]
     Active Substance: TESTOSTERONE
     Indication: BLOOD TESTOSTERONE DECREASED
     Dosage: UNK
     Route: 030
  4. HYDROCODONE/PARACETAMOL [Concomitant]
     Indication: ARTHRALGIA
     Dosage: UNK, 1X/DAY
     Route: 048
  5. CELEBREX [Suspect]
     Active Substance: CELECOXIB
     Indication: ARTHRALGIA
     Dosage: 200 MG, 1X/DAY
     Route: 048
  6. CELEBREX [Suspect]
     Active Substance: CELECOXIB
     Indication: ARTHRITIS
  7. HYDROCORTISONE. [Concomitant]
     Active Substance: HYDROCORTISONE
     Indication: SCLERODERMA
     Dosage: 10 MG, 4X/DAY
     Route: 048
  8. TIZANIDINE. [Concomitant]
     Active Substance: TIZANIDINE
     Indication: MUSCLE RELAXANT THERAPY
     Dosage: 2 MG, AS NEEDED
     Route: 048
  9. CELEBREX [Suspect]
     Active Substance: CELECOXIB
     Indication: SCLERODERMA
  10. FENTANYL. [Concomitant]
     Active Substance: FENTANYL
     Indication: SCLERODERMA
     Dosage: 75 UG, ALTERNATE DAY

REACTIONS (2)
  - Drug ineffective [Unknown]
  - Respiratory disorder [Not Recovered/Not Resolved]
